FAERS Safety Report 22280124 (Version 1)
Quarter: 2023Q2

REPORT INFORMATION
  Report Type: Spontaneous
  Country: ES (occurrence: ES)
  Receive Date: 20230503
  Receipt Date: 20230503
  Transmission Date: 20230721
  Serious: Yes (Other)
  Sender: FDA-Public Use
  Company Number: ES-ABBVIE-4700518

PATIENT
  Age: 40 Year
  Sex: Male

DRUGS (1)
  1. ADALIMUMAB [Suspect]
     Active Substance: ADALIMUMAB
     Indication: Behcet^s syndrome
     Dosage: 40 MG, BIW
     Route: 058

REACTIONS (3)
  - Lupus-like syndrome [Recovered/Resolved]
  - Antinuclear antibody increased [Recovered/Resolved]
  - Drug ineffective for unapproved indication [Unknown]
